FAERS Safety Report 8168644-1 (Version None)
Quarter: 2012Q1

REPORT INFORMATION
  Report Type: 
  Country: None (occurrence: None)
  Receive Date: 20120227
  Receipt Date: 20120216
  Transmission Date: 20120608
  Serious: Yes (Hospitalization)
  Sender: FDA-Public Use
  Company Number: BR-ASTRAZENECA-2012SE11131

PATIENT
  Age: 62 Year
  Sex: Female
  Weight: 85 kg

DRUGS (5)
  1. ASPIRIN [Concomitant]
     Dosage: DAILY
     Route: 048
     Dates: start: 20110901
  2. ATACAND HCT [Suspect]
     Indication: HYPERTENSION
     Dosage: 16/12.5 MG DAILY
     Route: 048
     Dates: start: 20120101
  3. SIMVASTATIN [Suspect]
     Indication: BLOOD CHOLESTEROL INCREASED
     Dosage: DAILY
     Route: 048
     Dates: end: 20111201
  4. ATENOLOL [Suspect]
     Indication: HYPERTENSION
     Route: 048
     Dates: start: 20110901
  5. ATACAND HCT [Suspect]
     Indication: HYPERTENSION
     Dosage: 16/2.5 MG DAILY
     Route: 048
     Dates: start: 20110901, end: 20120101

REACTIONS (3)
  - ABDOMINAL PAIN [None]
  - WRONG DRUG ADMINISTERED [None]
  - DRUG DISPENSING ERROR [None]
